FAERS Safety Report 6478100-4 (Version None)
Quarter: 2009Q4

REPORT INFORMATION
  Report Type: 
  Country: None (occurrence: None)
  Receive Date: 20091207
  Receipt Date: 20090224
  Transmission Date: 20100525
  Serious: No
  Sender: FDA-Public Use
  Company Number: US-AMGEN-KDL330301

PATIENT
  Sex: Female

DRUGS (5)
  1. ENBREL [Suspect]
     Indication: RHEUMATOID ARTHRITIS
     Route: 058
     Dates: start: 20080401
  2. METFORMIN HCL [Concomitant]
     Dates: start: 20080419
  3. NOVOLIN 70/30 [Concomitant]
     Dates: start: 20080419
  4. ZOCOR [Concomitant]
     Dates: start: 20081007
  5. ALBUTEROL [Concomitant]
     Dates: start: 20081221

REACTIONS (10)
  - HYPERSENSITIVITY [None]
  - INFLUENZA LIKE ILLNESS [None]
  - INJECTION SITE ERYTHEMA [None]
  - INJECTION SITE PRURITUS [None]
  - RHEUMATOID ARTHRITIS [None]
  - SNEEZING [None]
  - UPPER RESPIRATORY TRACT CONGESTION [None]
  - UPPER RESPIRATORY TRACT INFECTION [None]
  - VOMITING PROJECTILE [None]
  - WHEEZING [None]
